FAERS Safety Report 15634891 (Version 2)
Quarter: 2018Q4

REPORT INFORMATION
  Report Type: Report from Study
  Country: JP (occurrence: JP)
  Receive Date: 20181119
  Receipt Date: 20181127
  Transmission Date: 20190205
  Serious: Yes (Hospitalization)
  Sender: FDA-Public Use
  Company Number: JP-EXELIXIS-XL18418017132

PATIENT
  Age: 61 Year
  Sex: Male
  Weight: 48.6 kg

DRUGS (15)
  1. ALANINE, ARGININE HYDROCHLORIDE, GLYCINE, ISOLEUCINE, METHIONINE, PHEN [Concomitant]
     Indication: HEPATIC ENCEPHALOPATHY
     Dosage: 50 G, QD
     Route: 048
     Dates: start: 20180809
  2. BROTIZOLAM [Concomitant]
     Active Substance: BROTIZOLAM
     Indication: INSOMNIA
     Dosage: 0.25 MG, UNK
     Route: 048
  3. CLOSTRIDIUM BUTYRICUM [Concomitant]
     Active Substance: CLOSTRIDIUM BUTYRICUM SPORES STRAIN M-55
     Indication: DIARRHOEA
     Dosage: 1 DF, TID
     Route: 048
     Dates: start: 20170724
  4. UREA. [Concomitant]
     Active Substance: UREA
     Indication: PALMAR-PLANTAR ERYTHRODYSAESTHESIA SYNDROME
     Dosage: UNK
     Route: 062
     Dates: start: 20181031
  5. SUVOREXANT. [Concomitant]
     Active Substance: SUVOREXANT
     Indication: INSOMNIA
     Dosage: 15 MG, QD
     Route: 048
     Dates: start: 20180301
  6. SODIUM PHOSPHATE DIBASIC, SODIUM PHOSPHATE MONOBASIC (MONOHYDRATE) [Concomitant]
     Indication: HYPOPHOSPHATAEMIA
     Dosage: 400 MG, TID
     Route: 048
     Dates: start: 20170720
  7. ISOLEUCINE, LEUCINE, VALINE [Concomitant]
     Indication: HYPOALBUMINAEMIA
     Dosage: 20 G, TID
     Route: 048
     Dates: start: 20171005
  8. AMLODIPINE BESILATE [Concomitant]
     Active Substance: AMLODIPINE BESYLATE
     Indication: HYPERTENSION
     Dosage: 5 MG, QD
     Route: 048
     Dates: start: 20181031
  9. BROTIZOLAM [Concomitant]
     Active Substance: BROTIZOLAM
     Dosage: 0.25 MG, UNK
     Route: 048
  10. LOXOPROFEN SODIUM [Concomitant]
     Active Substance: LOXOPROFEN SODIUM
     Indication: PAIN
     Dosage: 60 MG, UNK
     Route: 048
     Dates: start: 20180502
  11. BROTIZOLAM [Concomitant]
     Active Substance: BROTIZOLAM
     Indication: ASCITES
     Dosage: 20 MG, QD
     Route: 048
     Dates: start: 20180906
  12. LOPERAMIDE HYDROCHLORIDE. [Concomitant]
     Active Substance: LOPERAMIDE HYDROCHLORIDE
     Indication: DIARRHOEA
     Dosage: 1 MG, UNK
     Route: 048
     Dates: start: 20181031
  13. CABOZANTINIB [Suspect]
     Active Substance: CABOZANTINIB
     Indication: HEPATOCELLULAR CARCINOMA
     Dosage: 60 MG, QD
     Route: 048
     Dates: start: 20181004
  14. VONOPRAZAN FUMARATE [Concomitant]
     Active Substance: VONOPRAZAN FUMURATE
     Indication: CHRONIC GASTRITIS
     Dosage: 10 MG, QD
     Route: 048
     Dates: start: 20161104
  15. GLYCYRRHIZA SPP. ROOT, PAEONIA LACTIFLORA ROOT [Concomitant]
     Indication: MUSCLE SPASMS
     Dosage: 1 DF, UNK
     Route: 048
     Dates: start: 20181112

REACTIONS (1)
  - Hypocalcaemia [Recovered/Resolved]

NARRATIVE: CASE EVENT DATE: 20181108
